FAERS Safety Report 14447637 (Version 3)
Quarter: 2021Q1

REPORT INFORMATION
  Report Type: Spontaneous
  Country: US (occurrence: US)
  Receive Date: 20180126
  Receipt Date: 20210201
  Transmission Date: 20210419
  Serious: No
  Sender: FDA-Public Use
  Company Number: US-ABBVIE-17K-163-2125198-00

PATIENT
  Sex: Male

DRUGS (1)
  1. HUMIRA [Suspect]
     Active Substance: ADALIMUMAB
     Indication: PSORIASIS
     Route: 058

REACTIONS (6)
  - Dry skin [Unknown]
  - Psoriasis [Not Recovered/Not Resolved]
  - Stress [Unknown]
  - Road traffic accident [Unknown]
  - Therapeutic product effect incomplete [Unknown]
  - Inflammation [Recovering/Resolving]
